FAERS Safety Report 9704440 (Version 3)
Quarter: 2013Q4

REPORT INFORMATION
  Report Type: Spontaneous
  Country: IT (occurrence: IT)
  Receive Date: 20131122
  Receipt Date: 20131205
  Transmission Date: 20140711
  Serious: Yes (Hospitalization)
  Sender: FDA-Public Use
  Company Number: PHHY2013IT132557

PATIENT
  Age: 51 Year
  Sex: Male

DRUGS (2)
  1. ALPRAZOLAM [Suspect]
     Dosage: 20 U, ONCE/SINGLE
     Route: 048
     Dates: start: 20130930, end: 20130930
  2. VENLAFAXINE [Suspect]
     Dosage: 20 U, ONCE/SINGLE
     Route: 048
     Dates: start: 20130930, end: 20130930

REACTIONS (2)
  - Sopor [Recovered/Resolved]
  - Intentional self-injury [Recovered/Resolved]
